FAERS Safety Report 18421978 (Version 1)
Quarter: 2020Q4

REPORT INFORMATION
  Report Type: Spontaneous
  Country: US (occurrence: US)
  Receive Date: 20201023
  Receipt Date: 20201023
  Transmission Date: 20210114
  Serious: No
  Sender: FDA-Public Use
  Company Number: US-PFIZER INC-2020407724

PATIENT
  Age: 43 Year
  Sex: Female

DRUGS (3)
  1. OCREVUS [Concomitant]
     Active Substance: OCRELIZUMAB
     Indication: PRIMARY PROGRESSIVE MULTIPLE SCLEROSIS
     Dosage: UNK
  2. SOLU-MEDROL [Suspect]
     Active Substance: METHYLPREDNISOLONE SODIUM SUCCINATE
     Indication: PRIMARY PROGRESSIVE MULTIPLE SCLEROSIS
     Dosage: UNK
  3. SOLU-MEDROL [Suspect]
     Active Substance: METHYLPREDNISOLONE SODIUM SUCCINATE
     Indication: PREMEDICATION

REACTIONS (2)
  - Fatigue [Recovered/Resolved]
  - Somnolence [Recovered/Resolved]
